FAERS Safety Report 8385890-2 (Version None)
Quarter: 2012Q2

REPORT INFORMATION
  Report Type: 
  Country: None (occurrence: None)
  Receive Date: 20120525
  Receipt Date: 20120516
  Transmission Date: 20120825
  Serious: Yes (Hospitalization)
  Sender: FDA-Public Use
  Company Number: DE-US-EMD SERONO, INC.-7126645

PATIENT
  Sex: Male
  Weight: 69 kg

DRUGS (3)
  1. SAIZEN [Suspect]
     Indication: SMALL FOR DATES BABY
     Route: 058
     Dates: start: 20080301
  2. ALBUTEROL [Concomitant]
     Indication: ASTHMA
  3. FLUTICASON [Concomitant]
     Indication: ASTHMA

REACTIONS (1)
  - PANCREATITIS ACUTE [None]
